FAERS Safety Report 4308798-8 (Version None)
Quarter: 2004Q1

REPORT INFORMATION
  Report Type: 
  Country: None (occurrence: None)
  Receive Date: 20040227
  Receipt Date: 20040214
  Transmission Date: 20041129
  Serious: Yes (Other)
  Sender: FDA-Public Use
  Company Number: 2004010925

PATIENT
  Age: 70 Year
  Sex: Male
  Weight: 58 kg

DRUGS (5)
  1. MINIPRESS XL [Suspect]
     Indication: HYPERTENSION
     Dosage: 5 MG (DAILY), ORAL
     Route: 048
  2. MINIPRESS XL [Suspect]
     Indication: PROSTATIC DISORDER
     Dosage: 5 MG (DAILY), ORAL
     Route: 048
  3. NIFEDIPINE [Concomitant]
  4. CLONIDINE HCL [Concomitant]
  5. ATENOLOL [Concomitant]

REACTIONS (3)
  - FISTULA [None]
  - ORTHOSTATIC HYPOTENSION [None]
  - SYNCOPE [None]
